FAERS Safety Report 6312209-0 (Version None)
Quarter: 2009Q3

REPORT INFORMATION
  Report Type: 
  Country: None (occurrence: None)
  Receive Date: 20090813
  Receipt Date: 20090813
  Transmission Date: 20100115
  Serious: Yes (Other)
  Sender: FDA-Public Use
  Company Number: None

PATIENT
  Age: 54 Year
  Sex: Female
  Weight: 95.2554 kg

DRUGS (1)
  1. CEFTRIAXONE [Suspect]
     Indication: PEPTOSTREPTOCOCCUS INFECTION
     Dates: start: 20090721, end: 20090729

REACTIONS (1)
  - CLOSTRIDIAL INFECTION [None]
